FAERS Safety Report 22175730 (Version 1)
Quarter: 2023Q2

REPORT INFORMATION
  Report Type: Spontaneous
  Country: FR (occurrence: FR)
  Receive Date: 20230405
  Receipt Date: 20230405
  Transmission Date: 20230722
  Serious: Yes (Other)
  Sender: FDA-Public Use
  Company Number: FR-MYLANLABS-2023M1034743

PATIENT
  Age: 75 Year
  Sex: Male

DRUGS (7)
  1. GEMCITABINE [Suspect]
     Active Substance: GEMCITABINE
     Indication: Adenocarcinoma pancreas
     Dosage: UNK
     Route: 065
  2. FLUOROURACIL [Concomitant]
     Active Substance: FLUOROURACIL
     Indication: Adenocarcinoma pancreas
     Dosage: UNK UNK, CYCLE, 12 CYCLES
     Route: 065
  3. LEUCOVORIN [Concomitant]
     Active Substance: LEUCOVORIN
     Indication: Adenocarcinoma pancreas
     Dosage: UNK UNK, CYCLE, 12 CYCLES
     Route: 065
  4. IRINOTECAN [Concomitant]
     Active Substance: IRINOTECAN
     Indication: Adenocarcinoma pancreas
     Dosage: UNK UNK, CYCLE, 12 CYCLES
     Route: 065
  5. OXALIPLATIN [Concomitant]
     Active Substance: OXALIPLATIN
     Indication: Adenocarcinoma pancreas
     Dosage: UNK UNK, CYCLE, 12 CYCLES
     Route: 065
  6. VERAPAMIL [Concomitant]
     Active Substance: VERAPAMIL HYDROCHLORIDE
     Indication: Hypertension
     Dosage: UNK
     Route: 065
  7. TINZAPARIN SODIUM [Concomitant]
     Active Substance: TINZAPARIN SODIUM
     Indication: Deep vein thrombosis
     Dosage: UNK
     Route: 065

REACTIONS (3)
  - Peripheral vascular disorder [Recovering/Resolving]
  - Ligament sprain [Recovering/Resolving]
  - Ulcer [Recovering/Resolving]
